FAERS Safety Report 23206562 (Version 1)
Quarter: 2023Q4

REPORT INFORMATION
  Report Type: Spontaneous
  Country: FR (occurrence: FR)
  Receive Date: 20231120
  Receipt Date: 20231120
  Transmission Date: 20240110
  Serious: Yes (Hospitalization, Disabling)
  Sender: FDA-Public Use
  Company Number: None

PATIENT
  Age: 65 Year
  Sex: Female
  Weight: 62.9 kg

DRUGS (8)
  1. AMOXICILLIN [Suspect]
     Active Substance: AMOXICILLIN
     Indication: Prophylaxis
     Dosage: 2000 MG, QD
     Route: 048
     Dates: start: 202106, end: 202301
  2. BACTRIM [Suspect]
     Active Substance: SULFAMETHOXAZOLE\TRIMETHOPRIM
     Indication: Prophylaxis
     Dosage: 3 DOSAGE FORM, QW
     Route: 048
     Dates: start: 202105
  3. LEVOLEUCOVORIN CALCIUM [Suspect]
     Active Substance: LEVOLEUCOVORIN CALCIUM
     Indication: Prophylaxis
     Dosage: 3 DF, QW
     Route: 048
     Dates: start: 202105
  4. FLUDARABINE [Suspect]
     Active Substance: FLUDARABINE PHOSPHATE
     Indication: Myelofibrosis
     Dosage: 50 MG, QD
     Route: 042
     Dates: start: 20210521, end: 20210523
  5. RUXOLITINIB [Suspect]
     Active Substance: RUXOLITINIB
     Indication: Myelofibrosis
     Dosage: 5 MG, QD
     Route: 048
     Dates: start: 20210215, end: 20210519
  6. METHOTREXATE [Suspect]
     Active Substance: METHOTREXATE
     Indication: Myelofibrosis
     Dosage: 70 MG, ONCE/SINGLE
     Route: 042
     Dates: start: 20210526, end: 20210531
  7. MELPHALAN [Suspect]
     Active Substance: MELPHALAN
     Indication: Myelofibrosis
     Dosage: 270 MG, ONCE/SINGLE
     Route: 042
     Dates: start: 20210521, end: 20210521
  8. VALACYCLOVIR HYDROCHLORIDE [Suspect]
     Active Substance: VALACYCLOVIR HYDROCHLORIDE
     Indication: Prophylaxis
     Dosage: 2000 MG, QD
     Route: 048
     Dates: start: 202101, end: 202301

REACTIONS (1)
  - Pulmonary arterial hypertension [Recovered/Resolved with Sequelae]

NARRATIVE: CASE EVENT DATE: 20230401
